FAERS Safety Report 17090843 (Version 1)
Quarter: 2019Q4

REPORT INFORMATION
  Report Type: Spontaneous
  Country: GB (occurrence: GB)
  Receive Date: 20191128
  Receipt Date: 20191128
  Transmission Date: 20200122
  Serious: No
  Sender: FDA-Public Use
  Company Number: None

PATIENT
  Age: 45 Year
  Sex: Female

DRUGS (1)
  1. OLAY COMPLETE ALL DAY MOISTURIZER BROAD SPECTRUM SPF 15 [Suspect]
     Active Substance: AVOBENZONE\HOMOSALATE\OCTISALATE\OCTOCRYLENE
     Indication: THERAPEUTIC SKIN CARE TOPICAL

REACTIONS (5)
  - Erythema [None]
  - Pain of skin [None]
  - Swelling face [None]
  - Burning sensation [None]
  - Periorbital swelling [None]

NARRATIVE: CASE EVENT DATE: 20191128
